FAERS Safety Report 17968404 (Version 2)
Quarter: 2020Q3

REPORT INFORMATION
  Report Type: Spontaneous
  Country: FR (occurrence: FR)
  Receive Date: 20200701
  Receipt Date: 20200817
  Transmission Date: 20201103
  Serious: Yes (Hospitalization)
  Sender: FDA-Public Use
  Company Number: FR-ABBVIE-20K-056-3467375-00

PATIENT
  Age: 56 Year
  Sex: Male
  Weight: 127 kg

DRUGS (4)
  1. CEFOTAXIME [Suspect]
     Active Substance: CEFOTAXIME SODIUM
     Indication: INFECTION
     Dosage: INCONNUE
     Route: 042
     Dates: start: 20200421, end: 20200425
  2. HEPARINE SODIQUE [Concomitant]
     Active Substance: HEPARIN SODIUM
     Indication: PULMONARY EMBOLISM
     Route: 042
     Dates: start: 20200421, end: 20200503
  3. KALETRA [Suspect]
     Active Substance: LOPINAVIR\RITONAVIR
     Indication: CORONAVIRUS INFECTION
     Route: 048
     Dates: start: 20200423, end: 20200427
  4. SPIRAMYCINE [Suspect]
     Active Substance: SPIRAMYCIN
     Indication: INFECTION
     Dosage: INCONNUE
     Route: 042
     Dates: start: 20200421, end: 20200425

REACTIONS (1)
  - Acute kidney injury [Recovered/Resolved]

NARRATIVE: CASE EVENT DATE: 20200426
